FAERS Safety Report 23662584 (Version 1)
Quarter: 2024Q1

REPORT INFORMATION
  Report Type: Spontaneous
  Country: CH (occurrence: CH)
  Receive Date: 20240322
  Receipt Date: 20240322
  Transmission Date: 20240409
  Serious: Yes (Hospitalization, Other)
  Sender: FDA-Public Use
  Company Number: None

PATIENT
  Age: 35 Year
  Sex: Female
  Weight: 70.5 kg

DRUGS (21)
  1. BLEOMYCIN [Suspect]
     Active Substance: BLEOMYCIN SULFATE
     Indication: Hodgkin^s disease
     Dosage: 17480 [IU], FREQUENCY: 1 TOTAL, BLEOMYCIN GIVEN CYCLICALLY: 13.12.-27.12.23 ZYKLUS 1 BEACOPP PROTOCO
     Route: 041
     Dates: start: 20231227, end: 20231227
  2. BLEOMYCIN [Suspect]
     Active Substance: BLEOMYCIN SULFATE
     Dosage: 17480 [IU], FREQUENCY: 1 TOTAL, BLEOMYCIN GIVEN CYCLICALLY: 13.12.-27.12.23 ZYKLUS 1 BEACOPP PROTOCO
     Route: 041
     Dates: start: 20240115, end: 20240115
  3. BLEOMYCIN [Suspect]
     Active Substance: BLEOMYCIN SULFATE
     Dosage: 17480 [IU], FREQUENCY: 1 TOTAL, BLEOMYCIN GIVEN CYCLICALLY: 13.12.-27.12.23 ZYKLUS 1 BEACOPP PROTOCO
     Route: 041
     Dates: start: 20240129, end: 20240129
  4. BLEOMYCIN [Suspect]
     Active Substance: BLEOMYCIN SULFATE
     Dosage: 17480 [IU], FREQUENCY: CYCLICAL, BLEOMYCIN GIVEN CYCLICALLY: 13.12.-27.12.23 ZYKLUS 1 BEACOPP PROTOC
     Route: 041
     Dates: start: 20240212
  5. CYCLOPHOSPHAMIDE [Suspect]
     Active Substance: CYCLOPHOSPHAMIDE
     Indication: Hodgkin^s disease
     Dosage: UNK
     Route: 065
     Dates: start: 20231213, end: 20240115
  6. MESNA [Suspect]
     Active Substance: MESNA
     Indication: Hodgkin^s disease
     Dosage: UNK
     Route: 065
     Dates: start: 20231213, end: 20240115
  7. DOXORUBICIN [Suspect]
     Active Substance: DOXORUBICIN
     Indication: Hodgkin^s disease
     Dosage: 35 MG/M2 IN CYCLE 1 (13.12.-27.12.23 ) AND 2 (08.01.-15.01.24 ) BEACOPP  PROTOCOL (ON D1 OF EACH, FR
     Route: 041
     Dates: start: 20231213, end: 20231213
  8. DOXORUBICIN [Suspect]
     Active Substance: DOXORUBICIN
     Dosage: DOSE: 25 MG/M2, (35 MG/M2  IN CYCLE 1 (13.12.-27.12.23 ) AND 2 (08.01.-15.01.24 ) BEACOPP  PROTOCOL
     Route: 041
     Dates: start: 20240129, end: 20240129
  9. DOXORUBICIN [Suspect]
     Active Substance: DOXORUBICIN
     Dosage: 35 MG/M2  IN CYCLE 1 (13.12.-27.12.23 ) AND 2 (08.01.-15.01.24 ) BEACOPP  PROTOCOL (ON D1 OF EACH, F
     Route: 041
     Dates: start: 20240108, end: 20240108
  10. DOXORUBICIN [Suspect]
     Active Substance: DOXORUBICIN
     Dosage: WILL BE CONTINUED IN NEXT CYCLE (25ML/M2) ; CYCLICAL
     Route: 041
     Dates: start: 20240212
  11. VINBLASTINE SULFATE [Suspect]
     Active Substance: VINBLASTINE SULFATE
     Indication: Hodgkin^s disease
     Dosage: 10.5 MG, ABVD PROTOCOL ON D1 OF EACH CYCLE, WILL BE CONTINUED ; CYCLICAL
     Route: 040
     Dates: start: 20240129
  12. DACARBAZINE [Suspect]
     Active Substance: DACARBAZINE
     Indication: Hodgkin^s disease
     Dosage: 660 MG, ABVD PROTOCOL ON D1 OF EACH CYCLE, WILL BE CONTINUED ; CYCLICAL
     Route: 041
     Dates: start: 20240129
  13. NEULASTA [Suspect]
     Active Substance: PEGFILGRASTIM
     Indication: Chemotherapy
     Dosage: 6 MG, 16.12.2023, 11.01.2024, 01.02.2024, 15.02.2024 ; IN TOTAL
     Route: 058
     Dates: start: 20231216, end: 20231216
  14. NEULASTA [Suspect]
     Active Substance: PEGFILGRASTIM
     Dosage: 6 MG, 16.12.2023, 11.01.2024, 01.02.2024, 15.02.2024 ; IN TOTAL
     Route: 058
     Dates: start: 20240111, end: 20240111
  15. NEULASTA [Suspect]
     Active Substance: PEGFILGRASTIM
     Dosage: 6 MG, 16.12.2023, 11.01.2024, 01.02.2024, 15.02.2024 ; IN TOTAL
     Route: 058
     Dates: start: 20240201, end: 20240201
  16. NEULASTA [Suspect]
     Active Substance: PEGFILGRASTIM
     Dosage: 6 MG, 16.12.2023, 11.01.2024, 01.02.2024, 15.02.2024. WILL BE CONTINUED IN NEXT CYCLE.  ; CYCLICAL
     Route: 058
     Dates: start: 20240215
  17. ACETAMINOPHEN [Concomitant]
     Active Substance: ACETAMINOPHEN
     Indication: Pain
     Dosage: UNKNOWN
     Route: 048
  18. CHLORHEXIDINE GLUCONATE;LIDOCAINE HYDROCHLORIDE [Concomitant]
     Dosage: 3-5 SPRAYS PER APPLICATION, 6 TO MAX. 10 APPLICATIONS PER DAY
     Route: 002
  19. IBUPROFEN [Concomitant]
     Active Substance: IBUPROFEN
     Indication: Pain
     Dosage: UNKNOWN
     Route: 048
  20. BACTRIM [Concomitant]
     Active Substance: SULFAMETHOXAZOLE\TRIMETHOPRIM
     Indication: Antifungal prophylaxis
     Dosage: 1 {DF}, ON MONDAYS, WEDNESDAYS AND FRIDAYS 1 TABLET IN THE MORNING ; CYCLICAL, (ROCHE PHARMA), START
     Route: 048
  21. VALTREX [Concomitant]
     Active Substance: VALACYCLOVIR HYDROCHLORIDE
     Indication: Antiviral prophylaxis
     Dosage: 500 MG, 1-0-1, (GLAXOSMITHKLINE), START DATE: DEC-2023
     Route: 048

REACTIONS (4)
  - Oral pain [Recovered/Resolved]
  - Neuralgia [Recovered/Resolved]
  - Pain [Recovered/Resolved]
  - Decreased appetite [Recovered/Resolved]

NARRATIVE: CASE EVENT DATE: 20240130
